APPROVED DRUG PRODUCT: PARICALCITOL
Active Ingredient: PARICALCITOL
Strength: 0.01MG/2ML (0.005MG/ML)
Dosage Form/Route: SOLUTION;INTRAVENOUS
Application: N207174 | Product #003 | TE Code: AP
Applicant: ACCORD HEALTHCARE INC
Approved: Feb 4, 2016 | RLD: No | RS: No | Type: RX